FAERS Safety Report 24234197 (Version 1)
Quarter: 2024Q3

REPORT INFORMATION
  Report Type: Spontaneous
  Country: US (occurrence: None)
  Receive Date: 20240820
  Receipt Date: 20240820
  Transmission Date: 20241017
  Serious: Yes (Disabling, Other)
  Sender: Public
  Company Number: None

PATIENT
  Age: 56 Year
  Sex: Female
  Weight: 48.15 kg

DRUGS (5)
  1. MYCOPHENOLATE MOFETIL [Suspect]
     Active Substance: MYCOPHENOLATE MOFETIL
     Indication: Lupus nephritis
     Dosage: OTHER QUANTITY : 1 TABLET(S);?FREQUENCY : TWICE A DAY;?
     Route: 048
     Dates: start: 20240301, end: 20240820
  2. LISINOPRIL [Concomitant]
     Active Substance: LISINOPRIL
  3. PAROXETINE [Concomitant]
     Active Substance: PAROXETINE
  4. PRILOSEC [Concomitant]
     Active Substance: OMEPRAZOLE MAGNESIUM
  5. women^s daily multivitamin [Concomitant]

REACTIONS (11)
  - Renal impairment [None]
  - Nausea [None]
  - Vomiting [None]
  - Diarrhoea [None]
  - Headache [None]
  - Flushing [None]
  - Pruritus [None]
  - Swelling [None]
  - Hyperhidrosis [None]
  - Chills [None]
  - Therapy change [None]

NARRATIVE: CASE EVENT DATE: 20240407
